FAERS Safety Report 9088770 (Version 3)
Quarter: 2013Q2

REPORT INFORMATION
  Report Type: Spontaneous
  Country: FR (occurrence: FR)
  Receive Date: 20130201
  Receipt Date: 20130508
  Transmission Date: 20140414
  Serious: Yes (Death, Hospitalization, Other)
  Sender: FDA-Public Use
  Company Number: FR-ACTELION-A-CH2013-78386

PATIENT
  Age: 84 Year
  Sex: Male
  Weight: 96 kg

DRUGS (6)
  1. TRACLEER [Suspect]
     Indication: PULMONARY ARTERIAL HYPERTENSION
     Dosage: 125 MG, BID
     Route: 048
     Dates: start: 20121024, end: 20130126
  2. TRACLEER [Suspect]
     Dosage: 62.5 MG, BID
     Route: 048
     Dates: start: 201206, end: 20121023
  3. KARDEGIC [Concomitant]
     Dosage: 75 UNK, UNK
  4. AMIODARONE [Concomitant]
     Dosage: 200 UNK, UNK
  5. PANTOPRAZOLE [Concomitant]
     Dosage: 20 UNK, UNK
  6. LASILIX [Concomitant]
     Dosage: 500 UNK, UNK

REACTIONS (9)
  - Right ventricular failure [Fatal]
  - Cardiogenic shock [Fatal]
  - Renal failure acute [Unknown]
  - Liver injury [Not Recovered/Not Resolved]
  - Alanine aminotransferase increased [Not Recovered/Not Resolved]
  - Aspartate aminotransferase increased [Not Recovered/Not Resolved]
  - Blood bilirubin increased [Not Recovered/Not Resolved]
  - Hepatomegaly [Not Recovered/Not Resolved]
  - Hepatic pain [Not Recovered/Not Resolved]
